FAERS Safety Report 6457800-6 (Version None)
Quarter: 2009Q4

REPORT INFORMATION
  Report Type: 
  Country: None (occurrence: None)
  Receive Date: 20091120
  Receipt Date: 20091118
  Transmission Date: 20100525
  Serious: Yes (Hospitalization)
  Sender: FDA-Public Use
  Company Number: 2009008992

PATIENT
  Age: 74 Year
  Sex: Male
  Weight: 75.7 kg

DRUGS (1)
  1. FENTANYL [Suspect]
     Indication: BREAKTHROUGH PAIN
     Dosage: 400 MCG, AS REQUIRED, BU
     Route: 002
     Dates: start: 20090711, end: 20090728

REACTIONS (1)
  - TACHYCARDIA PAROXYSMAL [None]
